FAERS Safety Report 8500468-5 (Version None)
Quarter: 2012Q3

REPORT INFORMATION
  Report Type: 
  Country: None (occurrence: None)
  Receive Date: 20120710
  Receipt Date: 20120626
  Transmission Date: 20120928
  Serious: Yes (Other)
  Sender: FDA-Public Use
  Company Number: DE-GLAXOSMITHKLINE-D0076119A

PATIENT
  Sex: Male
  Weight: 72 kg

DRUGS (2)
  1. FLUTICASONE PROPIONATE/SALMETEROL [Suspect]
     Indication: ASTHMA
     Route: 055
     Dates: start: 20070101
  2. CHONDROITIN/GLUCOSAMINE [Suspect]
     Indication: OSTEOARTHRITIS
     Dosage: 2700MG PER DAY
     Route: 048
     Dates: start: 20120402, end: 20120604

REACTIONS (4)
  - DRUG INTERACTION [None]
  - HIATUS HERNIA [None]
  - CANDIDIASIS [None]
  - HELICOBACTER GASTRITIS [None]
